FAERS Safety Report 7469488-6 (Version None)
Quarter: 2011Q2

REPORT INFORMATION
  Report Type: 
  Country: None (occurrence: None)
  Receive Date: 20110506
  Receipt Date: 20110506
  Transmission Date: 20111010
  Serious: Yes (Other)
  Sender: FDA-Public Use
  Company Number: None

PATIENT
  Age: 55 Year
  Sex: Female
  Weight: 71.6683 kg

DRUGS (1)
  1. STRATTERA [Suspect]
     Indication: ATTENTION DEFICIT/HYPERACTIVITY DISORDER
     Dosage: 10 MG. 2WKS 1 X DAY ORAL; 20 MG. 2WKS 1 X DAY ORAL
     Route: 048
     Dates: start: 20110201, end: 20110228

REACTIONS (3)
  - CARDIAC FLUTTER [None]
  - HEART RATE INCREASED [None]
  - BLOOD PRESSURE INCREASED [None]
